FAERS Safety Report 5442690-0 (Version None)
Quarter: 2007Q3

REPORT INFORMATION
  Report Type: 
  Country: None (occurrence: None)
  Receive Date: 20070904
  Receipt Date: 20070829
  Transmission Date: 20080115
  Serious: Yes (Other)
  Sender: FDA-Public Use
  Company Number: ES-ROXANE LABORATORIES, INC-2007-DE-04570GD

PATIENT
  Age: 1 Day
  Sex: Female
  Weight: 2.45 kg

DRUGS (9)
  1. MORPHINE [Suspect]
     Route: 064
  2. MORPHINE SULFATE [Suspect]
     Route: 064
  3. FENTANYL [Suspect]
     Route: 064
  4. PARACETAMOL [Concomitant]
     Route: 064
  5. METAMIZOLE [Concomitant]
     Route: 064
  6. KETOROLAC TROMETHAMINE [Concomitant]
     Route: 064
  7. PETHIDINE [Concomitant]
     Route: 064
  8. GABAPENTIN [Concomitant]
     Route: 064
  9. CLONAZEPAM [Concomitant]
     Route: 064

REACTIONS (2)
  - DRUG WITHDRAWAL SYNDROME NEONATAL [None]
  - PREMATURE BABY [None]
